FAERS Safety Report 12503277 (Version 1)
Quarter: 2016Q2

REPORT INFORMATION
  Report Type: Spontaneous
  Country: US (occurrence: None)
  Receive Date: 20160627
  Receipt Date: 20160627
  Transmission Date: 20160815
  Serious: Yes (Other)
  Sender: FDA-Public Use
  Company Number: None

PATIENT
  Age: 62 Year
  Sex: Female
  Weight: 94.35 kg

DRUGS (5)
  1. MOXIFLOXACIN HCI 400 MG TAB, 400 MG GIANT EAGLE PHARMACY [Suspect]
     Active Substance: MOXIFLOXACIN HYDROCHLORIDE
     Indication: LOCALISED INFECTION
     Dosage: 7 TABLET(S) ONCE A DAY TAKEN BY MOUTH
     Route: 048
     Dates: start: 20160414, end: 20160421
  2. IBUPROFEN. [Concomitant]
     Active Substance: IBUPROFEN
  3. MOXIFLOXACIN HCI 400 MG TAB, 400 MG GIANT EAGLE PHARMACY [Suspect]
     Active Substance: MOXIFLOXACIN HYDROCHLORIDE
     Indication: LIMB INJURY
     Dosage: 7 TABLET(S) ONCE A DAY TAKEN BY MOUTH
     Route: 048
     Dates: start: 20160414, end: 20160421
  4. LEVOTHYROXINE. [Concomitant]
     Active Substance: LEVOTHYROXINE
  5. LISINOPRIL. [Concomitant]
     Active Substance: LISINOPRIL

REACTIONS (4)
  - Hypoaesthesia [None]
  - Diarrhoea [None]
  - Pain in extremity [None]
  - Gait disturbance [None]

NARRATIVE: CASE EVENT DATE: 20160414
